FAERS Safety Report 7636513-9 (Version None)
Quarter: 2011Q3

REPORT INFORMATION
  Report Type: 
  Country: None (occurrence: None)
  Receive Date: 20110726
  Receipt Date: 20110614
  Transmission Date: 20111222
  Serious: Yes (Other)
  Sender: FDA-Public Use
  Company Number: GB-MERCK-1106GBR00058

PATIENT
  Age: 91 Year
  Sex: Female

DRUGS (1)
  1. SINEMET [Suspect]
     Route: 048

REACTIONS (4)
  - GASTROINTESTINAL DISORDER [None]
  - DIVERTICULITIS [None]
  - WEIGHT DECREASED [None]
  - HIP FRACTURE [None]
